FAERS Safety Report 18751889 (Version 2)
Quarter: 2021Q1

REPORT INFORMATION
  Report Type: Spontaneous
  Country: US (occurrence: US)
  Receive Date: 20210118
  Receipt Date: 20210122
  Transmission Date: 20210419
  Serious: Yes (Death)
  Sender: FDA-Public Use
  Company Number: US-PFIZER INC-2021020773

PATIENT
  Age: 32 Year
  Sex: Female

DRUGS (2)
  1. DROPERIDOL. [Suspect]
     Active Substance: DROPERIDOL
     Dosage: 2.5 MG
  2. DROPERIDOL. [Suspect]
     Active Substance: DROPERIDOL
     Dosage: 5 MG

REACTIONS (1)
  - Death [Fatal]
